FAERS Safety Report 7991076 (Version 2)
Quarter: 2012Q4

REPORT INFORMATION
  Report Type: Report from Study
  Country: US (occurrence: US)
  Receive Date: 20110615
  Receipt Date: 20120905
  Transmission Date: 20130627
  Serious: Yes (Hospitalization)
  Sender: FDA-Public Use
  Company Number: US-BRISTOL-MYERS SQUIBB COMPANY-15409808

PATIENT
  Age: 74 Year
  Sex: Male

DRUGS (10)
  1. IPILIMUMAB [Suspect]
     Indication: MALIGNANT MELANOMA
     Route: 042
     Dates: start: 20101105, end: 20101105
  2. SYMBICORT [Concomitant]
     Dosage: 1 df = 160/4.5 units NOS
2 Puff
     Route: 055
  3. VITAMIN D2 [Concomitant]
     Dosage: 1 DF = 50000 Units
     Route: 048
  4. FLUTICASONE [Concomitant]
     Dosage: Nasal spray
1 df = 2 spray
     Route: 045
  5. LISINOPRIL [Concomitant]
     Route: 048
  6. ATIVAN [Concomitant]
     Indication: NAUSEA
     Route: 048
  7. ATIVAN [Concomitant]
     Indication: ANXIETY
     Route: 048
  8. COMPAZINE [Concomitant]
     Indication: NAUSEA
     Route: 048
  9. SIMVASTATIN [Concomitant]
     Route: 048
  10. COUMADIN [Concomitant]
     Route: 048

REACTIONS (2)
  - Diverticulitis [Recovered/Resolved with Sequelae]
  - Diarrhoea [Recovered/Resolved with Sequelae]
